FAERS Safety Report 9316720 (Version 1)
Quarter: 2013Q2

REPORT INFORMATION
  Report Type: Spontaneous
  Country: US (occurrence: None)
  Receive Date: 20130528
  Receipt Date: 20130528
  Transmission Date: 20140414
  Serious: No
  Sender: FDA-Public Use
  Company Number: None

PATIENT
  Age: 72 Year
  Sex: Female
  Weight: 65.77 kg

DRUGS (2)
  1. CAPZASIN [Suspect]
     Indication: ARTHRITIS
     Dosage: SMEAR
     Route: 061
     Dates: start: 20130526, end: 20130526
  2. CAPZASIN [Suspect]
     Indication: PAIN
     Dosage: SMEAR
     Route: 061
     Dates: start: 20130526, end: 20130526

REACTIONS (2)
  - Skin burning sensation [None]
  - Product label issue [None]
